FAERS Safety Report 16811300 (Version 2)
Quarter: 2019Q3

REPORT INFORMATION
  Report Type: Report from Study
  Country: US (occurrence: US)
  Receive Date: 20190916
  Receipt Date: 20190918
  Transmission Date: 20191005
  Serious: Yes (Death, Hospitalization)
  Sender: FDA-Public Use
  Company Number: US-ACTELION-A-NJ2019-187056

PATIENT
  Age: 67 Year
  Sex: Male
  Weight: 81.63 kg

DRUGS (19)
  1. MULTIVITAMIN [Concomitant]
     Active Substance: VITAMINS
     Dosage: UNK
     Dates: start: 201902
  2. FUROSEMIDE. [Concomitant]
     Active Substance: FUROSEMIDE
     Dosage: 40 MG, BID EVERY M,W,F
  3. CITRACAL + D [Concomitant]
     Active Substance: CALCIUM CITRATE\VITAMIN D
     Dosage: UNK UNK, BID
  4. VITAMIN D [Concomitant]
     Active Substance: VITAMIN D NOS
     Dosage: 500000 EVERY WEDNESDAY
  5. RISEDRONATE [Concomitant]
     Active Substance: RISEDRONATE SODIUM
     Dosage: 35 MG EVERY WEDNESDAY
  6. METHYLPHENIDATE. [Concomitant]
     Active Substance: METHYLPHENIDATE
     Dosage: 10 MG, QD
  7. XIFAXAN [Concomitant]
     Active Substance: RIFAXIMIN
     Dosage: 550 MG, BID
     Dates: start: 201810
  8. RESTASIS [Concomitant]
     Active Substance: CYCLOSPORINE
     Dosage: UNK, QD
  9. MIDODRINE [Suspect]
     Active Substance: MIDODRINE
     Indication: PRODUCT USED FOR UNKNOWN INDICATION
     Route: 065
  10. MIDODRINE [Suspect]
     Active Substance: MIDODRINE
     Dosage: 5 MG, TID IF BLOOD PRESSURE IF LOW 120
     Route: 065
     Dates: start: 201902
  11. LEVOTHYROXINE. [Concomitant]
     Active Substance: LEVOTHYROXINE
     Dosage: 50 MG, QD
  12. SPIRONOLACTONE. [Concomitant]
     Active Substance: SPIRONOLACTONE
     Dosage: 100 MG, BID
  13. FENTANYL. [Concomitant]
     Active Substance: FENTANYL
     Dosage: 50 MG EVERY 2 DAYS
  14. OPSUMIT [Suspect]
     Active Substance: MACITENTAN
     Indication: PULMONARY ARTERIAL HYPERTENSION
     Dosage: 10 MG, QD
     Route: 048
     Dates: start: 20190201, end: 20190826
  15. ORENITRAM [Suspect]
     Active Substance: TREPROSTINIL
     Indication: PULMONARY ARTERIAL HYPERTENSION
     Route: 065
  16. ORENITRAM [Suspect]
     Active Substance: TREPROSTINIL
     Dosage: 2 MG, TID
     Route: 048
  17. TAMSULOSIN HCL [Concomitant]
     Active Substance: TAMSULOSIN HYDROCHLORIDE
     Dosage: 0.4 MG, QD
     Dates: start: 201811
  18. ORENITRAM [Suspect]
     Active Substance: TREPROSTINIL
     Dosage: DOSE INCREASES 0.125MG EVERY 5 DAYS 3X DAILY
     Route: 065
     Dates: start: 201902
  19. LACTULOSE. [Concomitant]
     Active Substance: LACTULOSE
     Dosage: 15 ML, BID
     Dates: start: 201810

REACTIONS (34)
  - Paracentesis [Unknown]
  - Headache [Recovered/Resolved]
  - Unresponsive to stimuli [Fatal]
  - Pulse absent [Fatal]
  - Abdominal pain [Recovered/Resolved]
  - Transfusion [Recovered/Resolved]
  - Melaena [Recovered/Resolved]
  - Abdominal distension [Recovered/Resolved]
  - Haemoglobin decreased [Recovered/Resolved]
  - Confusional state [Not Recovered/Not Resolved]
  - Gastrointestinal haemorrhage [Recovered/Resolved]
  - Urinary tract infection [Not Recovered/Not Resolved]
  - Cardiac arrest [Fatal]
  - Troponin I increased [Fatal]
  - Internal haemorrhage [Recovered/Resolved]
  - Hernia [Unknown]
  - Malaise [Unknown]
  - Asthenia [Unknown]
  - Haematemesis [Recovered/Resolved]
  - Faeces discoloured [Recovered/Resolved]
  - Abdominal discomfort [Not Recovered/Not Resolved]
  - Hernia pain [Recovered/Resolved]
  - Blood sodium decreased [Unknown]
  - Somnolence [Recovering/Resolving]
  - Ascites [Recovered/Resolved]
  - Fluid overload [Recovered/Resolved]
  - Lethargy [Not Recovered/Not Resolved]
  - Blood pressure decreased [Not Recovered/Not Resolved]
  - Muscle spasms [Recovering/Resolving]
  - Loss of personal independence in daily activities [Unknown]
  - Pulmonary arterial hypertension [Fatal]
  - Blood potassium decreased [Unknown]
  - Fatigue [Unknown]
  - Nephrolithiasis [Unknown]

NARRATIVE: CASE EVENT DATE: 201902
